FAERS Safety Report 24875268 (Version 5)
Quarter: 2025Q2

REPORT INFORMATION
  Report Type: Spontaneous
  Country: GB (occurrence: GB)
  Receive Date: 20250122
  Receipt Date: 20250422
  Transmission Date: 20250717
  Serious: Yes (Hospitalization, Other)
  Sender: MYLAN
  Company Number: GB-MYLANLABS-2025M1003904

PATIENT
  Sex: Female

DRUGS (3)
  1. CLOZARIL [Suspect]
     Active Substance: CLOZAPINE
     Indication: Schizophrenia
  2. TRULICITY [Concomitant]
     Active Substance: DULAGLUTIDE
     Dosage: QW, 3MG/0.5ML
  3. TOUJEO [Concomitant]
     Active Substance: INSULIN GLARGINE
     Dosage: AM, 300 UNITS/ML BEFORE BREAKFAST INSULIN

REACTIONS (8)
  - Hospitalisation [Unknown]
  - Overdose [Unknown]
  - Myocarditis [Unknown]
  - Malaise [Unknown]
  - Troponin I increased [Unknown]
  - Confusional state [Unknown]
  - Therapy interrupted [Unknown]
  - Treatment noncompliance [Unknown]

NARRATIVE: CASE EVENT DATE: 20250227
